FAERS Safety Report 14728611 (Version 2)
Quarter: 2018Q2

REPORT INFORMATION
  Report Type: Not Available
  Country: US (occurrence: US)
  Receive Date: 20180406
  Receipt Date: 20180516
  Transmission Date: 20180711
  Serious: No
  Sender: FDA-Public Use
  Company Number: US-NEUROCRINE BIOSCIENCES INC.-2018NBI00360

PATIENT
  Age: 60 Year
  Sex: Female
  Weight: 68.55 kg

DRUGS (30)
  1. TRIHEXYPHENIDYL HCL [Concomitant]
     Active Substance: TRIHEXYPHENIDYL HYDROCHLORIDE
     Route: 048
  2. BENZONATATE. [Concomitant]
     Active Substance: BENZONATATE
     Indication: COUGH
     Dosage: 200 MG TAKE 1 CAPSULE BY MOUTH THREE TIMES A DAY AS NEEDED
     Route: 048
  3. INGREZZA [Suspect]
     Active Substance: VALBENAZINE
     Indication: TARDIVE DYSKINESIA
     Route: 048
     Dates: start: 20170724, end: 20170731
  4. SINGULAIR [Concomitant]
     Active Substance: MONTELUKAST SODIUM
     Indication: HYPERSENSITIVITY
     Route: 048
  5. GABAPENTIN. [Concomitant]
     Active Substance: GABAPENTIN
     Indication: TARDIVE DYSKINESIA
     Dosage: 600 MG 2 TABLETS (1200 MG) BY MOUTH THREE TIMES A DAY
     Route: 048
  6. ADVAIR DISKUS [Concomitant]
     Active Substance: FLUTICASONE PROPIONATE\SALMETEROL XINAFOATE
     Dosage: 500-50 MCG/DOSE INHALE 1 PUFF TWICE A DAY
  7. VISTARIL [Concomitant]
     Active Substance: HYDROXYZINE PAMOATE
     Indication: ANXIETY DISORDER
     Dosage: 50 MG 1 BY MOUTH BID,
     Route: 048
  8. EFFEXOR XR [Concomitant]
     Active Substance: VENLAFAXINE HYDROCHLORIDE
     Dosage: 37.5 MG 1 BY MOUTH EVERY MORNING ALONG WITH 75 MG 3 TABLETS EVERY MORNING
     Route: 048
  9. TRAZODONE HYDROCHLORIDE. [Concomitant]
     Active Substance: TRAZODONE HYDROCHLORIDE
     Dosage: 100 MG TAKE 2 TABLET AT BEDTIME
  10. METFORMIN HCL [Concomitant]
     Active Substance: METFORMIN HYDROCHLORIDE
     Dosage: 500 MG TAKE ONE TABLET BY MOUTH 2 TIMES A DAY
     Route: 048
  11. LATANOPROST. [Concomitant]
     Active Substance: LATANOPROST
     Dosage: 0.005 % 1 DROP EACH EYE EVERY NIGHT AT BEDTIME
  12. ZOFRAN [Concomitant]
     Active Substance: ONDANSETRON HYDROCHLORIDE
     Indication: NAUSEA
     Dosage: 4 MG TAKE 1 TABLET BY MOUTH EVERY 6 HOURS AS NEEDED
     Route: 048
  13. SIMVASTATIN. [Concomitant]
     Active Substance: SIMVASTATIN
     Dosage: 20 MG TAKE 1 TABLET BY MOUTH AT BEDTIME
     Route: 048
  14. NYSTATIN. [Concomitant]
     Active Substance: NYSTATIN
     Dosage: 100000 UNIT/ML 4 MILLILITERS BY MOUTH SWISH AND SWALLOW FOUR TIMES A DAY
     Route: 048
  15. LANSOPRAZOLE. [Concomitant]
     Active Substance: LANSOPRAZOLE
     Dosage: 30 MG TAKE 1 CAPSULE BY MOUTH EVERY DAY
     Route: 048
  16. VOLTAREN [Concomitant]
     Active Substance: DICLOFENAC SODIUM
     Indication: PAIN
     Dosage: 1 % 4 G APPLIED TO RIGHT KNEE FOUR TIMES A DAY AS NEEDED
  17. CLOBETASOL PROPIONATE. [Concomitant]
     Active Substance: CLOBETASOL PROPIONATE
     Dosage: 0.05 % APPLY TO AFFECTED AREA TWICE A DAY AS NEEDED,
  18. INGREZZA [Suspect]
     Active Substance: VALBENAZINE
     Route: 048
     Dates: start: 20170801
  19. TAMSULOSIN HCL [Concomitant]
     Active Substance: TAMSULOSIN HYDROCHLORIDE
     Indication: BLADDER OUTLET OBSTRUCTION
     Dosage: 0.4 MG TAKE 1 CAPSULE BY MOUTH DAILY 30 MINUTES AFTER THE SAME MEAL EACH DAY ,
     Route: 048
  20. IBUPROFEN. [Concomitant]
     Active Substance: IBUPROFEN
     Indication: PAIN
     Dosage: 600 MG TAKE 1 TABLET BY MOUTH EVERY 12 HOURS AS NEEDED
     Route: 048
  21. DORZOLAMIDE HCL [Concomitant]
     Active Substance: DORZOLAMIDE HYDROCHLORIDE
     Dosage: 1 DROP BOTH EYES BID
  22. COMBIVENT RESPIMAT [Concomitant]
     Active Substance: ALBUTEROL SULFATE\IPRATROPIUM BROMIDE
     Dosage: 20~L00 MCG/ACT 2 PUFFS BID PRN
  23. LINZESS [Concomitant]
     Active Substance: LINACLOTIDE
     Dosage: 145 MCG 1 BY MOUTH EVERY DAY
     Route: 048
  24. ATIVAN [Concomitant]
     Active Substance: LORAZEPAM
     Indication: ANXIETY DISORDER
     Dosage: 1 MG TAKE 1 TABLET BY MOUTH THREE TIMES A DAY AS NEEDED, ONLY TO BE FILLED EVERY 30 DAYS
     Route: 048
  25. EFFEXOR XR [Concomitant]
     Active Substance: VENLAFAXINE HYDROCHLORIDE
     Indication: DEPRESSION
     Dosage: 75 MG TAKE 3 TABLETS EVERY MORNING,
     Route: 048
  26. CLONIDINE HCL [Concomitant]
     Active Substance: CLONIDINE HYDROCHLORIDE
     Dosage: 0.1 MG TAKE 1 TABLET BY MOUTH THREE TIMES A DAY
     Route: 048
  27. CYCLOBENZAPRINE HCL [Concomitant]
     Active Substance: CYCLOBENZAPRINE HYDROCHLORIDE
     Indication: PAIN
     Dosage: 5 MG TAKE 1-2 TABLETS BY MOUTH THREE TIMES A DAY AS NEEDED
     Route: 048
  28. TIMOLOL MALEATE. [Concomitant]
     Active Substance: TIMOLOL MALEATE
     Dosage: 22.3-6.8 MG/ML 1 DROP BOTH EYES BID
  29. EFFEXOR XR [Concomitant]
     Active Substance: VENLAFAXINE HYDROCHLORIDE
     Dosage: 150 MG BY MOUTH EVERY DAY
     Route: 048
  30. LASIX [Concomitant]
     Active Substance: FUROSEMIDE
     Dosage: 20 MG 1 TAB BY MOUTH EVERY DAY AS NEEDED,
     Route: 048

REACTIONS (10)
  - Hyperhidrosis [Unknown]
  - Musculoskeletal pain [Unknown]
  - Pruritus [Unknown]
  - Rash erythematous [Unknown]
  - Spinal pain [Unknown]
  - Drug ineffective [Unknown]
  - Headache [Unknown]
  - Arthritis [Unknown]
  - Anxiety [Unknown]
  - Fatigue [Not Recovered/Not Resolved]

NARRATIVE: CASE EVENT DATE: 20170818
